FAERS Safety Report 21813685 (Version 1)
Quarter: 2023Q1

REPORT INFORMATION
  Report Type: Spontaneous
  Country: CN (occurrence: CN)
  Receive Date: 20230104
  Receipt Date: 20230104
  Transmission Date: 20230417
  Serious: Yes (Hospitalization, Other)
  Sender: FDA-Public Use
  Company Number: CN-SUN PHARMACEUTICAL INDUSTRIES LTD-2022R1-371435

PATIENT
  Age: 58 Year
  Sex: Male

DRUGS (3)
  1. OXALIPLATIN [Suspect]
     Active Substance: OXALIPLATIN
     Indication: Neuroendocrine carcinoma
     Dosage: 150 MILLIGRAM DAY 1
     Route: 065
  2. CAMRELIZUMAB [Suspect]
     Active Substance: CAMRELIZUMAB
     Indication: Neuroendocrine carcinoma
     Dosage: 200 MILLIGRAM DAY 1
     Route: 065
  3. SURUFATINIB [Suspect]
     Active Substance: SURUFATINIB
     Indication: Neuroendocrine carcinoma
     Dosage: 250 MILLIGRAM, DAILY EVERY 21 DAYS
     Route: 048

REACTIONS (6)
  - Therapy partial responder [Unknown]
  - Hypoaesthesia [Unknown]
  - Hypertension [Unknown]
  - Proteinuria [Not Recovered/Not Resolved]
  - Haematuria [Not Recovered/Not Resolved]
  - Hyperthyroidism [Unknown]
